FAERS Safety Report 22216933 (Version 2)
Quarter: 2023Q2

REPORT INFORMATION
  Report Type: Spontaneous
  Country: IT (occurrence: IT)
  Receive Date: 20230417
  Receipt Date: 20230520
  Transmission Date: 20230722
  Serious: Yes (Other)
  Sender: FDA-Public Use
  Company Number: IT-JNJFOC-20180122192

PATIENT
  Age: 40 Year
  Sex: Male
  Weight: 70 kg

DRUGS (7)
  1. AMOXICILLIN\CLAVULANIC ACID [Suspect]
     Active Substance: AMOXICILLIN\CLAVULANIC ACID
     Indication: Product used for unknown indication
     Dosage: 12 DOSAGE FORM (1 TOTAL)
     Route: 048
     Dates: start: 20180115
  2. DELORAZEPAM [Suspect]
     Active Substance: DELORAZEPAM
     Indication: Product used for unknown indication
     Dosage: 20 MILLILITER (1 TOTAL) (ABC OS GTT)
     Route: 048
     Dates: start: 20180115
  3. IBUPROFEN [Suspect]
     Active Substance: IBUPROFEN
     Indication: Product used for unknown indication
     Dosage: 12 DOSAGE FORM (1 TOTAL)
     Route: 048
     Dates: start: 20180115
  4. BRINTELLIX [Suspect]
     Active Substance: VORTIOXETINE HYDROBROMIDE
     Indication: Product used for unknown indication
     Dosage: 15 MILLILITER (1 TOTAL)
     Route: 048
     Dates: start: 20180115
  5. TACHIPIRINA [Suspect]
     Active Substance: ACETAMINOPHEN
     Indication: Product used for unknown indication
     Dosage: 8 DOSAGE FORM (1 TOTAL)
     Route: 048
     Dates: start: 20180115
  6. ACETAMINOPHEN\PSEUDOEPHEDRINE HYDROCHLORIDE\TRIPROLIDINE HYDROCHLORIDE [Suspect]
     Active Substance: ACETAMINOPHEN\PSEUDOEPHEDRINE HYDROCHLORIDE\TRIPROLIDINE HYDROCHLORIDE
     Indication: Product used for unknown indication
     Dosage: 8 DOSAGE FORM (1 TOTAL)
     Route: 048
     Dates: start: 20180115
  7. DIHYDROCODEINE [Suspect]
     Active Substance: DIHYDROCODEINE
     Indication: Product used for unknown indication
     Dosage: 15 GRAM (1 TOTAL) (VIAL 15 G 1% OS GTT)
     Route: 048
     Dates: start: 20180115

REACTIONS (4)
  - Somnolence [Unknown]
  - Vomiting [Unknown]
  - Intentional self-injury [Unknown]
  - Intentional overdose [Unknown]

NARRATIVE: CASE EVENT DATE: 20180115
